FAERS Safety Report 19565561 (Version 3)
Quarter: 2025Q4

REPORT INFORMATION
  Report Type: Spontaneous
  Country: EU (occurrence: EU)
  Receive Date: 20210714
  Receipt Date: 20251029
  Transmission Date: 20260118
  Serious: Yes (Death, Other)
  Sender: BRISTOL-MYERS SQUIBB COMPANY
  Company Number: None

PATIENT
  Age: 70 Year
  Sex: Female

DRUGS (3)
  1. YERVOY [Suspect]
     Active Substance: IPILIMUMAB
     Indication: Metastatic malignant melanoma
     Dosage: METASTATIC MALIGNANT MELANOMA TREATED WITH 4 OUT OF 4 COURSES OF IPILIMUMAB/NIVOLUMAB COMBINATION. LAST COURSE GIVEN 19/FEB/2021.
     Dates: start: 20201218, end: 20210219
  2. OPDIVO [Suspect]
     Active Substance: NIVOLUMAB
     Indication: Metastatic malignant melanoma
     Dosage: METASTATIC MALIGNANT MELANOMA TREATED WITH 4 OUT OF 4 COURSES OF IPILIMUMAB/NIVOLUMAB COMBINATION. LAST COURSE GIVEN 19/FEB/2021.
     Dates: start: 20201218, end: 20210219
  3. PREDNISOLONE [Concomitant]
     Active Substance: PREDNISOLONE
     Indication: Colitis
     Dates: start: 20210304, end: 20210625

REACTIONS (5)
  - Bone marrow failure [Fatal]
  - Neutropenic sepsis [Fatal]
  - Multiple organ dysfunction syndrome [Fatal]
  - Neutropenia [Fatal]
  - Thrombocytopenia [Fatal]

NARRATIVE: CASE EVENT DATE: 20210414
